FAERS Safety Report 8866909 (Version 1)
Quarter: 2012Q4

REPORT INFORMATION
  Report Type: 
  Country: US (occurrence: US)
  Receive Date: 20121025
  Receipt Date: 20121025
  Transmission Date: 20130627
  Serious: No
  Sender: FDA-Public Use
  Company Number: US-AMGEN-USASP2012013726

PATIENT
  Age: 41 Year
  Sex: Male

DRUGS (6)
  1. ENBREL [Suspect]
     Indication: PRODUCT USED FOR UNKNOWN INDICATION
     Dosage: 50 mg, qwk
     Route: 058
  2. NASONEX [Concomitant]
     Dosage: 50 mug, UNK
  3. LISINOPRIL [Concomitant]
     Dosage: 10 mg, UNK
  4. SIMVASTATIN [Concomitant]
     Dosage: 40 mg, UNK
  5. MULTIVITAMIN                       /00097801/ [Concomitant]
     Dosage: UNK
  6. CITRACAL + D                       /01438101/ [Concomitant]
     Dosage: UNK

REACTIONS (2)
  - Sinus polyp [Recovering/Resolving]
  - Sinusitis [Recovering/Resolving]
